FAERS Safety Report 19645506 (Version 1)
Quarter: 2021Q3

REPORT INFORMATION
  Report Type: Report from Study
  Country: US (occurrence: US)
  Receive Date: 20210802
  Receipt Date: 20210802
  Transmission Date: 20211014
  Serious: Yes (Hospitalization)
  Sender: FDA-Public Use
  Company Number: US-BAYER-2021-185323

PATIENT
  Age: 29 Year
  Sex: Female

DRUGS (4)
  1. ORENITRAM [Concomitant]
     Active Substance: TREPROSTINIL
  2. ADEMPAS [Suspect]
     Active Substance: RIOCIGUAT
     Indication: PULMONARY ARTERIAL HYPERTENSION
     Dosage: UNK
  3. ADEMPAS [Suspect]
     Active Substance: RIOCIGUAT
     Indication: PULMONARY ARTERIAL HYPERTENSION
     Dosage: 2.5 MG, TID
     Route: 048
     Dates: start: 20191207
  4. REMODULIN [Suspect]
     Active Substance: TREPROSTINIL

REACTIONS (2)
  - Feeling abnormal [None]
  - Hospitalisation [None]

NARRATIVE: CASE EVENT DATE: 20210726
